FAERS Safety Report 13153488 (Version 5)
Quarter: 2022Q1

REPORT INFORMATION
  Report Type: Report from Study
  Country: CO (occurrence: CO)
  Receive Date: 20170126
  Receipt Date: 20220125
  Transmission Date: 20220423
  Serious: Yes (Life-Threatening, Hospitalization, Other)
  Sender: FDA-Public Use
  Company Number: PHHY2016CO120988

PATIENT
  Age: 58 Year
  Sex: Male
  Weight: 50 kg

DRUGS (4)
  1. ELTROMBOPAG OLAMINE [Suspect]
     Active Substance: ELTROMBOPAG OLAMINE
     Indication: Immune thrombocytopenia
     Dosage: 50 MG, QD
     Route: 048
     Dates: start: 20130801, end: 201708
  2. ELTROMBOPAG OLAMINE [Suspect]
     Active Substance: ELTROMBOPAG OLAMINE
     Dosage: 50 MG, QD
     Route: 048
  3. ELTROMBOPAG OLAMINE [Suspect]
     Active Substance: ELTROMBOPAG OLAMINE
     Dosage: 25 MG, QD
     Route: 048
  4. PREDNISOLONE [Suspect]
     Active Substance: PREDNISOLONE
     Indication: Product used for unknown indication
     Dosage: 65 MG, QD
     Route: 048

REACTIONS (13)
  - Platelet count decreased [Recovering/Resolving]
  - Tuberculosis [Unknown]
  - Feeling of despair [Unknown]
  - Pallor [Unknown]
  - Chronic gastritis [Unknown]
  - Swelling [Unknown]
  - Muscle atrophy [Unknown]
  - Malaise [Unknown]
  - Dizziness [Unknown]
  - Oropharyngeal pain [Unknown]
  - Chills [Unknown]
  - Pyrexia [Unknown]
  - Diarrhoea [Unknown]

NARRATIVE: CASE EVENT DATE: 20161201
